FAERS Safety Report 4386499-8 (Version None)
Quarter: 2004Q2

REPORT INFORMATION
  Report Type: 
  Country: None (occurrence: None)
  Receive Date: 20040623
  Receipt Date: 20040610
  Transmission Date: 20050107
  Serious: Yes (Hospitalization)
  Sender: FDA-Public Use
  Company Number: US-JNJFOC-20040603016

PATIENT
  Sex: Female
  Weight: 66.6788 kg

DRUGS (1)
  1. REMICADE [Suspect]
     Indication: RHEUMATOID ARTHRITIS
     Dosage: 4 MG/KG, INTRAVENOUS
     Route: 042

REACTIONS (2)
  - NEOPLASM [None]
  - SINUS DISORDER [None]
